FAERS Safety Report 6112261-1 (Version None)
Quarter: 2009Q1

REPORT INFORMATION
  Report Type: 
  Country: None (occurrence: None)
  Receive Date: 20090310
  Receipt Date: 20090302
  Transmission Date: 20090719
  Serious: Yes (Hospitalization)
  Sender: FDA-Public Use
  Company Number: MIN-00479

PATIENT
  Age: 20 Year
  Sex: Male

DRUGS (1)
  1. MINOCYCLINE CAPSULES 100MG [Suspect]
     Indication: ACNE
     Dosage: 100 MG

REACTIONS (5)
  - DIZZINESS [None]
  - HEADACHE [None]
  - MENINGISM [None]
  - PSYCHOMOTOR RETARDATION [None]
  - SOMNOLENCE [None]
